FAERS Safety Report 5520334-7 (Version None)
Quarter: 2007Q4

REPORT INFORMATION
  Report Type: 
  Country: None (occurrence: None)
  Receive Date: 20071119
  Receipt Date: 20071107
  Transmission Date: 20080405
  Serious: Yes (Hospitalization)
  Sender: FDA-Public Use
  Company Number: JP-JNJFOC-20071007346

PATIENT
  Age: 73 Year
  Sex: Female

DRUGS (2)
  1. RISPERDAL [Suspect]
     Indication: DEMENTIA
     Route: 048
  2. ARICEPT [Suspect]
     Indication: DEMENTIA

REACTIONS (5)
  - ABDOMINAL DISCOMFORT [None]
  - BLOOD CREATINE PHOSPHOKINASE INCREASED [None]
  - CHEST DISCOMFORT [None]
  - RHABDOMYOLYSIS [None]
  - URINARY RETENTION [None]
